FAERS Safety Report 7275178-5 (Version None)
Quarter: 2011Q1

REPORT INFORMATION
  Report Type: 
  Country: None (occurrence: None)
  Receive Date: 20110204
  Receipt Date: 20110124
  Transmission Date: 20110831
  Serious: Yes (Other)
  Sender: FDA-Public Use
  Company Number: PHFR2011GB00899

PATIENT
  Sex: Male

DRUGS (1)
  1. CLOZARIL [Suspect]
     Indication: SCHIZOPHRENIA
     Dosage: UNK
     Route: 048
     Dates: start: 20070403

REACTIONS (7)
  - BLOOD LACTATE DEHYDROGENASE DECREASED [None]
  - BLOOD SODIUM INCREASED [None]
  - MEAN CELL HAEMOGLOBIN DECREASED [None]
  - BLOOD POTASSIUM INCREASED [None]
  - EOSINOPHIL COUNT INCREASED [None]
  - RED BLOOD CELL COUNT INCREASED [None]
  - MEAN CELL VOLUME ABNORMAL [None]
